FAERS Safety Report 11193821 (Version 2)
Quarter: 2015Q2

REPORT INFORMATION
  Report Type: Spontaneous
  Country: NO (occurrence: NO)
  Receive Date: 20150616
  Receipt Date: 20150626
  Transmission Date: 20150821
  Serious: Yes (Death, Other)
  Sender: FDA-Public Use
  Company Number: NO-BAYER-2015-319897

PATIENT
  Sex: Male

DRUGS (1)
  1. XOFIGO [Suspect]
     Active Substance: RADIUM RA-223 DICHLORIDE
     Indication: HORMONE-REFRACTORY PROSTATE CANCER
     Dosage: UNK
     Dates: start: 20150305, end: 20150409

REACTIONS (4)
  - Pancytopenia [Fatal]
  - Sepsis [Fatal]
  - Cardiac arrest [Fatal]
  - Prostate cancer [Fatal]

NARRATIVE: CASE EVENT DATE: 20150506
